FAERS Safety Report 9267201 (Version 1)
Quarter: 2013Q2

REPORT INFORMATION
  Report Type: Spontaneous
  Country: FR (occurrence: FR)
  Receive Date: 20130502
  Receipt Date: 20130502
  Transmission Date: 20140414
  Serious: Yes (Other)
  Sender: FDA-Public Use
  Company Number: FR-VERTEX PHARMACEUTICALS INC-2013-005587

PATIENT
  Sex: Male

DRUGS (7)
  1. INCIVO [Suspect]
     Indication: HEPATITIS C
     Dosage: INITIATED SINCE 2 MONTHS AND 1 WEEK 375 MG - 3 TABLETS TWICE PER DAY
     Route: 048
  2. SUBUTEX [Concomitant]
     Indication: PRODUCT USED FOR UNKNOWN INDICATION
     Dosage: DOSAGE FORM UNSPECIFIED
     Route: 065
  3. COPEGUS [Concomitant]
     Indication: HEPATITIS C
     Dosage: DOSAGE FORM UNSPECIFIED
     Route: 048
  4. IXPRIM [Concomitant]
     Indication: PAIN IN EXTREMITY
     Dosage: DOSAGE FORM UNSPECIFIED
     Route: 048
  5. BACLOFENE [Concomitant]
     Indication: PRODUCT USED FOR UNKNOWN INDICATION
     Dosage: DOSAGE FORM UNSPECIFIED
     Route: 065
  6. EFFERALGAN [Concomitant]
     Indication: PRODUCT USED FOR UNKNOWN INDICATION
     Dosage: UNK, PRN
     Route: 065
  7. OTHER THERAPEUTIC PRODUCT UNSPECIFIED [Concomitant]
     Indication: VOMITING
     Dosage: DOSAGE FORM UNSPECIFIED
     Route: 065

REACTIONS (3)
  - Weight decreased [Recovered/Resolved]
  - Vomiting [Unknown]
  - Decreased appetite [Recovered/Resolved]
